FAERS Safety Report 13923335 (Version 1)
Quarter: 2017Q3

REPORT INFORMATION
  Report Type: Spontaneous
  Country: US (occurrence: None)
  Receive Date: 20170830
  Receipt Date: 20170830
  Transmission Date: 20171127
  Serious: Yes (Death)
  Sender: FDA-Public Use
  Company Number: None

PATIENT
  Age: 50 Year
  Sex: Male

DRUGS (6)
  1. HYDROMORPHONE (DILAUDID) [Concomitant]
  2. MORPHINE SULFATE ER [Concomitant]
     Active Substance: MORPHINE SULFATE
  3. AUGMENTIN [Concomitant]
     Active Substance: AMOXICILLIN\CLAVULANATE POTASSIUM
  4. LONSURF [Suspect]
     Active Substance: TIPIRACIL HYDROCHLORIDE\TRIFLURIDINE
     Indication: RECTAL CANCER
     Dosage: 2 TABS, ON DAYS 1-5 AND DAYS 8-12 TWICE A DAY ORAL (PATIENT HAD 28 DAYS CYCLE)
     Route: 048
     Dates: start: 20170701, end: 20170828
  5. PROCHLORPERAZINE (COMPAZINE) [Concomitant]
  6. LONSURF [Suspect]
     Active Substance: TIPIRACIL HYDROCHLORIDE\TRIFLURIDINE
     Indication: RECTAL CANCER
     Dosage: 1 TABLET, ON DAYS 1-5 AND DAYS 8-12 TWICE A DAY ORAL (PATIENT HAD 28 DAY CYCLE)
     Route: 048
     Dates: start: 20170701, end: 20170828

REACTIONS (1)
  - Death [None]

NARRATIVE: CASE EVENT DATE: 20170828
